FAERS Safety Report 20155867 (Version 1)
Quarter: 2021Q4

REPORT INFORMATION
  Report Type: Spontaneous
  Country: JP (occurrence: JP)
  Receive Date: 20211207
  Receipt Date: 20211207
  Transmission Date: 20220303
  Serious: Yes (Other)
  Sender: FDA-Public Use
  Company Number: JP-PFIZER INC-202101649331

PATIENT
  Age: 19 Year
  Sex: Male

DRUGS (2)
  1. METHOTREXATE SODIUM [Suspect]
     Active Substance: METHOTREXATE SODIUM
     Indication: T-cell lymphoma
  2. ASPARAGINASE [Suspect]
     Active Substance: ASPARAGINASE
     Indication: T-cell lymphoma

REACTIONS (1)
  - Hepatic steatosis [Recovering/Resolving]
